FAERS Safety Report 9819313 (Version 1)
Quarter: 2014Q1

REPORT INFORMATION
  Report Type: Spontaneous
  Country: GB (occurrence: GB)
  Receive Date: 20140115
  Receipt Date: 20140115
  Transmission Date: 20141002
  Serious: Yes (Hospitalization, Disabling, Other)
  Sender: FDA-Public Use
  Company Number: GB-TEVA-454702ISR

PATIENT
  Age: 28 Year
  Sex: Female
  Weight: 75 kg

DRUGS (7)
  1. HALOPERIDOL [Suspect]
     Indication: BIPOLAR DISORDER
     Route: 048
     Dates: start: 20100303, end: 20131219
  2. CLONAZEPAM [Suspect]
     Indication: SEDATION
     Route: 048
     Dates: start: 20131019, end: 20131220
  3. ZUCLOPENTHIXOL DECANOATE [Suspect]
     Indication: BIPOLAR DISORDER
     Dosage: 200MG WEEKLY
     Route: 051
     Dates: start: 20131210, end: 20131220
  4. LITHIUM [Suspect]
     Indication: BIPOLAR DISORDER
     Dates: start: 20100303, end: 20131219
  5. LORAZEPAM [Concomitant]
  6. ABILIFY [Concomitant]
  7. CLOPIXOL [Concomitant]

REACTIONS (15)
  - Diabetes mellitus [Not Recovered/Not Resolved]
  - Medication error [Not Recovered/Not Resolved]
  - Anger [Not Recovered/Not Resolved]
  - Blunted affect [Not Recovered/Not Resolved]
  - Mania [Not Recovered/Not Resolved]
  - Muscle spasms [Not Recovered/Not Resolved]
  - Myalgia [Not Recovered/Not Resolved]
  - Psychotic disorder [Not Recovered/Not Resolved]
  - Weight increased [Not Recovered/Not Resolved]
  - Withdrawal syndrome [Not Recovered/Not Resolved]
  - Nervous system disorder [Not Recovered/Not Resolved]
  - Amnesia [Not Recovered/Not Resolved]
  - Mental disorder [Not Recovered/Not Resolved]
  - Feeling abnormal [Not Recovered/Not Resolved]
  - Aggression [Not Recovered/Not Resolved]
